FAERS Safety Report 16709983 (Version 1)
Quarter: 2019Q4

REPORT INFORMATION
  Report Type: Spontaneous
  Country: US (occurrence: US)
  Receive Date: 20190815
  Receipt Date: 20190815
  Transmission Date: 20200122
  Serious: Yes (Disabling)
  Sender: FDA-Public Use
  Company Number: None

PATIENT
  Age: 76 Year
  Sex: Female
  Weight: 71.67 kg

DRUGS (13)
  1. XPOVIO [Suspect]
     Active Substance: SELINEXOR
     Indication: PLASMA CELL MYELOMA
     Dosage: ?          OTHER FREQUENCY:WEEKLY;?
     Route: 048
     Dates: start: 20190812
  2. LEVOTHYROXINE 88MCG [Concomitant]
     Active Substance: LEVOTHYROXINE
  3. CYPROHEPTADINE 4MG [Concomitant]
  4. ACYCLOVIR 200MG [Concomitant]
  5. BIOTIN 300 MCG [Concomitant]
  6. ERGOCALCIFEROL 50000 UNITS [Concomitant]
  7. LUTEIN 6MG [Concomitant]
  8. ONDANSETRON 8MG [Concomitant]
     Active Substance: ONDANSETRON
  9. PROBIOTIC [Concomitant]
     Active Substance: PROBIOTICS NOS
  10. DEXAMETHASONE 4MG [Concomitant]
     Active Substance: DEXAMETHASONE
  11. ASPIRIN 81MG [Concomitant]
     Active Substance: ASPIRIN
  12. TURMERIC 500MG [Concomitant]
  13. METOPROLOL TARTRATE 50MG [Concomitant]
     Active Substance: METOPROLOL TARTRATE

REACTIONS (2)
  - Nausea [None]
  - Decreased appetite [None]

NARRATIVE: CASE EVENT DATE: 20190813
